FAERS Safety Report 5525068-0 (Version None)
Quarter: 2007Q4

REPORT INFORMATION
  Report Type: 
  Country: None (occurrence: None)
  Receive Date: 20071119
  Receipt Date: 20071105
  Transmission Date: 20080405
  Serious: Yes (Death)
  Sender: FDA-Public Use
  Company Number: S07-USA-03575-01

PATIENT
  Age: 50 Year
  Sex: Female
  Weight: 98.4306 kg

DRUGS (5)
  1. CELEXA [Suspect]
     Indication: DEPRESSION
     Dosage: 20 MG  BID PO
     Route: 048
     Dates: start: 20060725, end: 20070512
  2. CELEXA [Suspect]
     Indication: DEPRESSION
     Dosage: 10  MG QD PO
     Route: 048
     Dates: start: 20060126, end: 20060321
  3. CELEXA [Suspect]
     Indication: DEPRESSION
     Dosage: 30 MG QD PO
     Route: 048
     Dates: start: 20060322, end: 20060724
  4. BENADRYL [Suspect]
     Indication: BLADDER DISORDER
     Dosage: 50 MG QD
     Dates: end: 20070512
  5. PROPRANOLOL [Concomitant]

REACTIONS (20)
  - CARDIOMEGALY [None]
  - CARDIOVASCULAR DISORDER [None]
  - COMPLETED SUICIDE [None]
  - CONTUSION [None]
  - DRUG TOXICITY [None]
  - EMPHYSEMA [None]
  - EXCORIATION [None]
  - HALLUCINATION, AUDITORY [None]
  - IATROGENIC INJURY [None]
  - MULTIPLE DRUG OVERDOSE INTENTIONAL [None]
  - NEPHROSCLEROSIS [None]
  - NO THERAPEUTIC RESPONSE [None]
  - OBESITY [None]
  - PULMONARY CONGESTION [None]
  - PULMONARY OEDEMA [None]
  - RIB FRACTURE [None]
  - SLEEP DISORDER [None]
  - STERNAL FRACTURE [None]
  - UNRESPONSIVE TO STIMULI [None]
  - URINARY RETENTION [None]
